FAERS Safety Report 5997089-5 (Version None)
Quarter: 2008Q4

REPORT INFORMATION
  Report Type: 
  Country: None (occurrence: None)
  Receive Date: 20081212
  Receipt Date: 20081103
  Transmission Date: 20090506
  Serious: No
  Sender: FDA-Public Use
  Company Number: US-ABBOTT-08P-163-0485321-00

PATIENT
  Weight: 72.64 kg

DRUGS (6)
  1. HUMIRA [Suspect]
     Indication: PSORIATIC ARTHROPATHY
  2. DARVOCET [Concomitant]
     Indication: PAIN
     Route: 048
  3. ZOLPIDEM TARTRATE [Concomitant]
     Indication: INSOMNIA
     Route: 048
  4. ESCITALOPRAM OXALATE [Concomitant]
     Indication: DRUG USE FOR UNKNOWN INDICATION
  5. CLONAZEPAM [Concomitant]
     Indication: ANXIOLYTIC THERAPY
     Route: 048
  6. HYDROXYZINE [Concomitant]
     Indication: PRURITUS
     Route: 048

REACTIONS (2)
  - RASH MACULAR [None]
  - TOOTHACHE [None]
